FAERS Safety Report 26160161 (Version 1)
Quarter: 2025Q4

REPORT INFORMATION
  Report Type: Spontaneous
  Country: JP (occurrence: JP)
  Receive Date: 20251216
  Receipt Date: 20251216
  Transmission Date: 20260117
  Serious: Yes (Other)
  Sender: GENMAB
  Company Number: JP-GENMAB-2025-04035

PATIENT
  Sex: Female

DRUGS (4)
  1. EPKINLY [Suspect]
     Active Substance: EPCORITAMAB-BYSP
     Indication: Diffuse large B-cell lymphoma
     Dosage: UNK
     Route: 058
     Dates: start: 20250203, end: 202502
  2. EPKINLY [Suspect]
     Active Substance: EPCORITAMAB-BYSP
     Dosage: 48 MILLIGRAM, FROM CYCLE1DAY15
     Route: 058
     Dates: start: 20250217
  3. DEXAMETHASONE [Concomitant]
     Active Substance: DEXAMETHASONE
     Indication: Premedication
     Dosage: UNK, FROM CYCLE1DAY15 TO DAY18 OF EPKINLY TREATMENT
     Dates: start: 20250217, end: 20250220
  4. ACETAMINOPHEN [Concomitant]
     Active Substance: ACETAMINOPHEN
     Indication: Premedication
     Dosage: UNK, ON CYCLE1DAY15 OF EPKINLY TREATMENT
     Dates: start: 20250217, end: 20250217

REACTIONS (4)
  - Hypogammaglobulinaemia [Unknown]
  - Cerebral infarction [Unknown]
  - Cytokine release syndrome [Recovered/Resolved]
  - Cytomegalovirus test positive [Unknown]

NARRATIVE: CASE EVENT DATE: 20250101
